FAERS Safety Report 24420993 (Version 2)
Quarter: 2024Q4

REPORT INFORMATION
  Report Type: Spontaneous
  Country: AE (occurrence: AE)
  Receive Date: 20241010
  Receipt Date: 20241018
  Transmission Date: 20250115
  Serious: No
  Sender: ROCHE
  Company Number: AE-BoehringerIngelheim-2024-BI-029847

PATIENT
  Age: 18 Month
  Sex: Female

DRUGS (4)
  1. ALTEPLASE [Suspect]
     Active Substance: ALTEPLASE
     Indication: Thrombosis prophylaxis
     Route: 065
  2. ALTEPLASE [Suspect]
     Active Substance: ALTEPLASE
     Route: 065
  3. HEPARIN SODIUM [Suspect]
     Active Substance: HEPARIN SODIUM
     Indication: Product used for unknown indication
     Route: 042
  4. HEPARIN SODIUM [Suspect]
     Active Substance: HEPARIN SODIUM
     Dosage: 160 UNIT 0.03 ML/HR
     Route: 042

REACTIONS (1)
  - Hyperphosphataemia [Unknown]
